FAERS Safety Report 19997308 (Version 8)
Quarter: 2022Q2

REPORT INFORMATION
  Report Type: Report from Study
  Country: US (occurrence: US)
  Receive Date: 20211026
  Receipt Date: 20220430
  Transmission Date: 20220721
  Serious: Yes (Other)
  Sender: FDA-Public Use
  Company Number: NVSC2021US243548

PATIENT
  Sex: Male

DRUGS (1)
  1. ENTRESTO [Suspect]
     Active Substance: SACUBITRIL\VALSARTAN
     Indication: Cardiac failure chronic
     Dosage: 1 DOSAGE FORM, UNKNOWN, (49/51MG)
     Route: 065

REACTIONS (4)
  - Ejection fraction decreased [Unknown]
  - Influenza [Unknown]
  - Weight decreased [Unknown]
  - Cough [Unknown]
